FAERS Safety Report 12270886 (Version 2)
Quarter: 2016Q2

REPORT INFORMATION
  Report Type: Spontaneous
  Country: US (occurrence: US)
  Receive Date: 20160415
  Receipt Date: 20160506
  Transmission Date: 20160815
  Serious: Yes (Other)
  Sender: FDA-Public Use
  Company Number: US-009507513-1604USA003406

PATIENT
  Sex: Female

DRUGS (1)
  1. NEXPLANON [Suspect]
     Active Substance: ETONOGESTREL
     Indication: CONTRACEPTION
     Dosage: 68 MG, UNK
     Route: 030
     Dates: end: 2016

REACTIONS (4)
  - Device deployment issue [Recovered/Resolved]
  - Device use error [Unknown]
  - Device difficult to use [Recovered/Resolved]
  - Incorrect route of drug administration [Unknown]
